FAERS Safety Report 25930940 (Version 1)
Quarter: 2025Q4

REPORT INFORMATION
  Report Type: Spontaneous
  Country: US (occurrence: US)
  Receive Date: 20251016
  Receipt Date: 20251016
  Transmission Date: 20260119
  Serious: No
  Sender: SANOFI AVENTIS
  Company Number: US-SA-2025SA307385

PATIENT
  Sex: Female
  Weight: 79.09 kg

DRUGS (13)
  1. DUPIXENT [Suspect]
     Active Substance: DUPILUMAB
     Dosage: 300 MG, QOW
     Route: 058
  2. METHYL SALICYLATE [Concomitant]
     Active Substance: METHYL SALICYLATE
     Dosage: UNK
  3. TYLENOL EXTRA STRENGTH [Concomitant]
     Active Substance: ACETAMINOPHEN
     Dosage: UNK
  4. FUROSEMIDE [Concomitant]
     Active Substance: FUROSEMIDE
     Dosage: UNK
  5. FLONASE ALLERGY RELIEF [Concomitant]
     Active Substance: FLUTICASONE PROPIONATE
     Dosage: UNK
  6. VERAPAMIL [Concomitant]
     Active Substance: VERAPAMIL HYDROCHLORIDE
     Dosage: UNK
  7. HYDRALAZINE HCL [Concomitant]
     Active Substance: HYDRALAZINE HYDROCHLORIDE
     Dosage: UNK
  8. HYDROXYZINE HYDROCHLORIDE [Concomitant]
     Active Substance: HYDROXYZINE HYDROCHLORIDE
     Dosage: UNK
  9. VITAMIN D3 [Concomitant]
     Active Substance: CHOLECALCIFEROL
     Dosage: UNK
  10. ZANTAC 360 ORIGINAL STRENGTH [Concomitant]
     Dosage: UNK
  11. LOSARTAN POTASSIUM [Concomitant]
     Active Substance: LOSARTAN POTASSIUM
  12. SYNTHROID [Concomitant]
     Active Substance: LEVOTHYROXINE SODIUM
     Dosage: UNK
  13. PRAVASTATIN SODIUM [Concomitant]
     Active Substance: PRAVASTATIN SODIUM
     Dosage: UNK

REACTIONS (1)
  - Injection site erythema [Not Recovered/Not Resolved]
